FAERS Safety Report 9486120 (Version 4)
Quarter: 2013Q4

REPORT INFORMATION
  Report Type: Report from Study
  Country: CA (occurrence: CA)
  Receive Date: 20130829
  Receipt Date: 20131016
  Transmission Date: 20140711
  Serious: Yes (Hospitalization)
  Sender: FDA-Public Use
  Company Number: CA-JNJFOC-20120911880

PATIENT
  Age: 5 Year
  Sex: Female
  Weight: 23.5 kg

DRUGS (6)
  1. GOLIMUMAB [Suspect]
     Indication: JUVENILE IDIOPATHIC ARTHRITIS
     Route: 058
     Dates: start: 20120920
  2. GOLIMUMAB [Suspect]
     Indication: JUVENILE IDIOPATHIC ARTHRITIS
     Route: 058
     Dates: start: 20120711
  3. GOLIMUMAB [Suspect]
     Indication: JUVENILE IDIOPATHIC ARTHRITIS
     Route: 058
     Dates: start: 20120619
  4. LOSEC [Concomitant]
     Dates: start: 20110915
  5. FOLIC ACID [Concomitant]
     Indication: PROPHYLAXIS
     Dates: start: 20111020
  6. METHOTREXATE [Concomitant]

REACTIONS (1)
  - Cellulitis [Recovered/Resolved]
